FAERS Safety Report 21739057 (Version 1)
Quarter: 2022Q4

REPORT INFORMATION
  Report Type: Spontaneous
  Country: JP (occurrence: JP)
  Receive Date: 20221216
  Receipt Date: 20221216
  Transmission Date: 20230113
  Serious: Yes (Other)
  Sender: FDA-Public Use
  Company Number: JP-002147023-NVSC2022JP264536

PATIENT

DRUGS (1)
  1. NELARABINE [Suspect]
     Active Substance: NELARABINE
     Indication: T-cell lymphoma refractory
     Dosage: UNK UNK, CYCLIC
     Route: 065

REACTIONS (2)
  - Neurogenic bladder [Unknown]
  - Neurogenic bowel [Unknown]
